FAERS Safety Report 23172813 (Version 1)
Quarter: 2023Q4

REPORT INFORMATION
  Report Type: Report from Study
  Country: CA (occurrence: CA)
  Receive Date: 20231110
  Receipt Date: 20231110
  Transmission Date: 20240110
  Serious: Yes (Other)
  Sender: FDA-Public Use
  Company Number: CA-ALXN-A202309647

PATIENT
  Age: 2 Year
  Sex: Male
  Weight: 11.4 kg

DRUGS (9)
  1. KANUMA [Suspect]
     Active Substance: SEBELIPASE ALFA
     Indication: Lysosomal acid lipase deficiency
     Dosage: 1 MG/KG, QW
     Route: 042
     Dates: start: 20210319, end: 2021
  2. KANUMA [Suspect]
     Active Substance: SEBELIPASE ALFA
     Dosage: 50 MG, QW
     Route: 065
     Dates: start: 20210920, end: 20230213
  3. KANUMA [Suspect]
     Active Substance: SEBELIPASE ALFA
     Dosage: 80 MG, QW
     Route: 042
     Dates: start: 20230220
  4. ACETAMINOPHEN [Concomitant]
     Active Substance: ACETAMINOPHEN
     Indication: Pyrexia
     Dosage: UNK
     Route: 065
  5. PREDNISONE [Concomitant]
     Active Substance: PREDNISONE
     Indication: Product used for unknown indication
     Dosage: 5 MILLIGRAM
     Route: 065
  6. LEVOTHYROXINE [Concomitant]
     Active Substance: LEVOTHYROXINE
     Indication: Product used for unknown indication
     Dosage: 75 MICROGRAM
     Route: 065
  7. NEXIUM 24HR [Concomitant]
     Active Substance: ESOMEPRAZOLE MAGNESIUM
     Indication: Product used for unknown indication
     Route: 065
  8. ALFAROL [Concomitant]
     Active Substance: ALFACALCIDOL
     Indication: Product used for unknown indication
     Route: 065
  9. RISEDRONATE SODIUM [Concomitant]
     Active Substance: RISEDRONATE SODIUM
     Indication: Product used for unknown indication
     Route: 065

REACTIONS (9)
  - Vascular device occlusion [Unknown]
  - Catheter site bruise [Not Recovered/Not Resolved]
  - Decreased appetite [Recovered/Resolved]
  - Hand-foot-and-mouth disease [Recovered/Resolved]
  - Respiratory syncytial virus infection [Recovering/Resolving]
  - Respiratory tract congestion [Recovering/Resolving]
  - Off label use [Unknown]
  - Ear pain [Recovering/Resolving]
  - Pyrexia [Recovered/Resolved]

NARRATIVE: CASE EVENT DATE: 20230801
